FAERS Safety Report 17565826 (Version 1)
Quarter: 2020Q1

REPORT INFORMATION
  Report Type: Spontaneous
  Country: DE (occurrence: DE)
  Receive Date: 20200320
  Receipt Date: 20200320
  Transmission Date: 20200409
  Serious: Yes (Hospitalization)
  Sender: FDA-Public Use
  Company Number: DE-PFIZER INC-2020117553

PATIENT
  Age: 62 Year
  Sex: Female

DRUGS (8)
  1. RAMIPRIL. [Concomitant]
     Active Substance: RAMIPRIL
     Dosage: 5 MG, 1X/DAY (1-0-0-0)
  2. TRAMADOL. [Suspect]
     Active Substance: TRAMADOL
     Dosage: UNK, AS NEEDED
  3. ACETYLSALICYLIC ACID [Concomitant]
     Active Substance: ASPIRIN
     Dosage: 100 MG, 1X/DAY (0-1-0-0)
  4. IBUPROFEN. [Suspect]
     Active Substance: IBUPROFEN
     Dosage: UNK, AS NEEDED
  5. LORAZEPAM. [Suspect]
     Active Substance: LORAZEPAM
     Dosage: 1 MG, 3X/DAY (1-1-1-0)
  6. OPIPRAMOL [Suspect]
     Active Substance: OPIPRAMOL
     Dosage: 15 MG, 1X/DAY (0-0-1-0)
  7. CITALOPRAM [Suspect]
     Active Substance: CITALOPRAM HYDROBROMIDE
     Dosage: 0.5 DF, 1X/DAY (0.5-0-0-0)
  8. OLANZAPIN [Suspect]
     Active Substance: OLANZAPINE
     Dosage: 5 MG, 1X/DAY   (0-0-1-0)

REACTIONS (8)
  - Accidental overdose [Unknown]
  - Confusional state [Unknown]
  - Product prescribing error [Unknown]
  - Fall [Unknown]
  - Musculoskeletal pain [Unknown]
  - Skin irritation [Unknown]
  - General physical health deterioration [Unknown]
  - Delirium [Unknown]
